FAERS Safety Report 8409800-4 (Version None)
Quarter: 2012Q2

REPORT INFORMATION
  Report Type: 
  Country: None (occurrence: None)
  Receive Date: 20120605
  Receipt Date: 20120529
  Transmission Date: 20120825
  Serious: Yes (Other)
  Sender: FDA-Public Use
  Company Number: US-PFIZER INC-2011313811

PATIENT
  Sex: Female

DRUGS (6)
  1. LYRICA [Suspect]
     Indication: FIBROMYALGIA
     Dosage: 100 MG, 3X/DAY
     Route: 048
     Dates: start: 20110512, end: 20120419
  2. ULTRAM [Concomitant]
     Indication: FIBROMYALGIA
     Dosage: 50 MG, UNK
     Dates: start: 20110302
  3. TRAMADOL [Concomitant]
     Dosage: UNK
  4. LISINOPRIL [Concomitant]
     Indication: HYPERTENSION
     Dosage: 10 MG, UNK
     Dates: start: 20110929
  5. HYDROCHLOROTHIAZIDE [Concomitant]
     Indication: FIBROMYALGIA
     Dosage: 25 MG, UNK
     Dates: start: 20120409
  6. CELEXA [Suspect]
     Dosage: 20 MG, UNK
     Dates: start: 20110929

REACTIONS (6)
  - HYPERTENSION [None]
  - WEIGHT INCREASED [None]
  - HEADACHE [None]
  - NAUSEA [None]
  - VOMITING [None]
  - SWELLING [None]
